FAERS Safety Report 5112501-1 (Version None)
Quarter: 2006Q3

REPORT INFORMATION
  Report Type: 
  Country: None (occurrence: None)
  Receive Date: 20060920
  Receipt Date: 20060920
  Transmission Date: 20061208
  Serious: Yes (Other)
  Sender: FDA-Public Use
  Company Number: None

PATIENT
  Age: 45 Year
  Sex: Female
  Weight: 61.2356 kg

DRUGS (1)
  1. CAPZASIN-HP    0.1%  CAPSAICIN    CHATTEM [Suspect]
     Indication: MYALGIA
     Dosage: LIGHTLY APPLIED     1    TRANSDERMAL
     Route: 062
     Dates: start: 20060918, end: 20060918

REACTIONS (3)
  - BURNING SENSATION [None]
  - ERYTHEMA [None]
  - PAIN [None]
